FAERS Safety Report 9601307 (Version 2)
Quarter: 2013Q4

REPORT INFORMATION
  Report Type: Spontaneous
  Country: US (occurrence: US)
  Receive Date: 20131006
  Receipt Date: 20131119
  Transmission Date: 20140711
  Serious: No
  Sender: FDA-Public Use
  Company Number: US-009507513-1309USA013253

PATIENT
  Age: 35 Year
  Sex: Female
  Weight: 88.89 kg

DRUGS (2)
  1. IMPLANON [Suspect]
     Dosage: 1 ROD
     Route: 059
     Dates: start: 20090223, end: 20130611
  2. IMPLANON [Suspect]
     Dosage: 1 ROD
     Route: 059
     Dates: start: 20120221

REACTIONS (4)
  - Incorrect drug administration duration [Recovered/Resolved]
  - Medical device complication [Recovered/Resolved]
  - Medical device complication [Recovered/Resolved]
  - No adverse event [Unknown]
